FAERS Safety Report 4557062-0 (Version None)
Quarter: 2005Q1

REPORT INFORMATION
  Report Type: 
  Country: None (occurrence: None)
  Receive Date: 20050120
  Receipt Date: 20050110
  Transmission Date: 20050727
  Serious: Yes (Congenital Anomaly)
  Sender: FDA-Public Use
  Company Number: US-GLAXOSMITHKLINE-A0540236A

PATIENT

DRUGS (4)
  1. LAMICTAL [Suspect]
     Indication: GRAND MAL CONVULSION
     Dates: start: 20020101
  2. FOLIC ACID [Concomitant]
     Indication: CONGENITAL ABNORMALITY PROPHYLAXIS
     Dosage: 1G PER DAY
     Route: 048
     Dates: start: 20010101, end: 20040501
  3. MULTI-VITAMIN [Concomitant]
     Dosage: 1TAB PER DAY
     Route: 048
     Dates: start: 20020101, end: 20040501
  4. IRON SUPPLEMENT [Concomitant]
     Dosage: 1TAB PER DAY
     Route: 048
     Dates: start: 20030101, end: 20040501

REACTIONS (5)
  - DEVELOPMENTAL DELAY [None]
  - DRUG EXPOSURE DURING PREGNANCY [None]
  - NEONATAL DISORDER [None]
  - NERVOUS SYSTEM DISORDER [None]
  - PREGNANCY [None]
